FAERS Safety Report 4598161-7 (Version None)
Quarter: 2005Q1

REPORT INFORMATION
  Report Type: 
  Country: None (occurrence: None)
  Receive Date: 20050204
  Receipt Date: 20040322
  Transmission Date: 20050727
  Serious: Yes (Hospitalization)
  Sender: FDA-Public Use
  Company Number: PHEH2004US03315

PATIENT
  Age: 45 Year
  Sex: Female

DRUGS (4)
  1. CLOZARIL [Suspect]
     Indication: SCHIZOPHRENIA
     Dosage: ORAL
     Dates: start: 19930101
  2. CLOZARIL [Suspect]
     Dates: start: 20030901, end: 20040101
  3. PROZAC [Concomitant]
  4. RISPERDAL [Concomitant]

REACTIONS (4)
  - CONVULSION [None]
  - DIARRHOEA [None]
  - HAEMATEMESIS [None]
  - SEPSIS [None]
